FAERS Safety Report 26043000 (Version 1)
Quarter: 2025Q4

REPORT INFORMATION
  Report Type: Spontaneous
  Country: US (occurrence: US)
  Receive Date: 20251113
  Receipt Date: 20251113
  Transmission Date: 20260118
  Serious: No
  Sender: ANI
  Company Number: US-ANIPHARMA-2025-US-045501

PATIENT
  Age: 50 Year
  Sex: Female

DRUGS (15)
  1. HYDROCHLOROTHIAZIDE [Concomitant]
     Active Substance: HYDROCHLOROTHIAZIDE
  2. IPRATROPIUM SOL 0.02% [Concomitant]
  3. LEVOTHYROXINE [Concomitant]
     Active Substance: LEVOTHYROXINE
  4. LOSARTAN POTASSIUM [Concomitant]
     Active Substance: LOSARTAN POTASSIUM
  5. SERTRALINE HYDROCHLORIDE [Concomitant]
     Active Substance: SERTRALINE HYDROCHLORIDE
  6. TRAMADOL HCL [Concomitant]
     Active Substance: TRAMADOL HYDROCHLORIDE
  7. TRAZODONE HCL [Concomitant]
     Active Substance: TRAZODONE HYDROCHLORIDE
  8. ATORVASTATIN [Concomitant]
     Active Substance: ATORVASTATIN
  9. BREZTRI AERO AER 160-9-4 [Concomitant]
  10. BROMPHENIRAM SOL [Concomitant]
  11. COMBIVENT RE AER 20-100MC [Concomitant]
  12. D2000 ULTRA CAP [Concomitant]
  13. FAMOTIDINE [Concomitant]
     Active Substance: FAMOTIDINE
  14. FERROUS FUMARATE [Concomitant]
     Active Substance: FERROUS FUMARATE
  15. CORTICOTROPIN [Suspect]
     Active Substance: CORTICOTROPIN
     Indication: Pulmonary sarcoidosis
     Dosage: 40 UNITS EVERY 72 HOURS
     Route: 058

REACTIONS (1)
  - Injection site pain [Recovered/Resolved]
